FAERS Safety Report 15723130 (Version 3)
Quarter: 2021Q1

REPORT INFORMATION
  Report Type: Spontaneous
  Country: US (occurrence: US)
  Receive Date: 20181214
  Receipt Date: 20210303
  Transmission Date: 20210419
  Serious: Yes (Other)
  Sender: FDA-Public Use
  Company Number: PHEH2018US052798

PATIENT
  Age: 47 Year
  Sex: Male

DRUGS (1)
  1. TASIGNA [Suspect]
     Active Substance: NILOTINIB
     Indication: CHRONIC MYELOID LEUKAEMIA
     Dosage: 200 MG, QD
     Route: 048
     Dates: start: 20090101, end: 2016

REACTIONS (17)
  - Cerebrovascular accident [Unknown]
  - Carotid artery occlusion [Unknown]
  - Cholelithiasis [Unknown]
  - Pain [Unknown]
  - Peripheral vascular disorder [Unknown]
  - Visual impairment [Unknown]
  - Arteriosclerosis [Unknown]
  - Nicotine dependence [Unknown]
  - Obesity [Unknown]
  - Injury [Unknown]
  - Emotional distress [Unknown]
  - Thrombocytopenia [Unknown]
  - Hepatic cirrhosis [Unknown]
  - Hepatosplenomegaly [Unknown]
  - Anxiety [Unknown]
  - Erectile dysfunction [Unknown]
  - Orthostatic hypotension [Unknown]

NARRATIVE: CASE EVENT DATE: 201603
